FAERS Safety Report 9250422 (Version 1)
Quarter: 2013Q1

REPORT INFORMATION
  Report Type: Spontaneous
  Country: US (occurrence: None)
  Receive Date: 20130305
  Receipt Date: 20130305
  Transmission Date: 20140127
  Serious: Yes (Hospitalization)
  Sender: FDA-Public Use
  Company Number: 163-21880-1206703

PATIENT
  Age: 65 Year
  Sex: Female
  Weight: 53.07 kg

DRUGS (14)
  1. REVLIMID [Suspect]
     Indication: PLASMA CELL MYELOMA
     Dosage: 1 IN 1 D
     Route: 048
     Dates: start: 200902
  2. LYRICA (PREGABALIN) [Suspect]
  3. CYMBALTA (DULOXETINE HYDROCHLORIDE) [Suspect]
  4. CALCIUM 600 + VITAMIN D (CALCIUM D3 ^STADA^) [Concomitant]
  5. DIAZEPAM (DIAZEPAM) [Concomitant]
  6. FLUDROCORTISONE ACETATE (FLUDROCORTISONE ACETATE) [Concomitant]
  7. HYDROCODONE-ACETAMINOPHEN (PROCET/ USA/) [Concomitant]
  8. MAGNESIUM (MAGNESIUM) (CHEWALBLE TABLETS) [Concomitant]
  9. MIDODRINE HCL (MIDODRINE HYDROCHLORIDE) [Concomitant]
  10. MVI  (MVI) (TABLETS) [Concomitant]
  11. ACETAMINOPHEN\HYDROCODONE BITARTRATE [Concomitant]
  12. POTASSIUM CHLORIDE (POTASSIUM CHLORIDE) [Concomitant]
  13. VITAMIN B-100 (VITMAIN B) [Concomitant]
  14. VITAMIN D (ERGOCALCIFEROL) [Concomitant]

REACTIONS (2)
  - Pneumonia [None]
  - Neutropenia [None]
